FAERS Safety Report 18973733 (Version 1)
Quarter: 2021Q1

REPORT INFORMATION
  Report Type: Spontaneous
  Country: US (occurrence: US)
  Receive Date: 20210305
  Receipt Date: 20210305
  Transmission Date: 20210420
  Serious: Yes (Hospitalization)
  Sender: FDA-Public Use
  Company Number: None

PATIENT
  Sex: Female

DRUGS (12)
  1. CELECOXIB. [Concomitant]
     Active Substance: CELECOXIB
  2. SIMVASTATIN. [Concomitant]
     Active Substance: SIMVASTATIN
  3. DOK [Concomitant]
     Active Substance: DOCUSATE SODIUM
  4. ONDANSETRON [Concomitant]
     Active Substance: ONDANSETRON
  5. ESBRIET [Suspect]
     Active Substance: PIRFENIDONE
     Indication: IDIOPATHIC PULMONARY FIBROSIS
     Route: 048
     Dates: start: 20171212
  6. MIDODRINE [Concomitant]
     Active Substance: MIDODRINE
  7. MUCINEX [Concomitant]
     Active Substance: GUAIFENESIN
  8. TRAZODONE [Concomitant]
     Active Substance: TRAZODONE HYDROCHLORIDE
  9. FLORASTOR [Concomitant]
     Active Substance: SACCHAROMYCES CEREVISIAE
  10. NEXIUM [Concomitant]
     Active Substance: ESOMEPRAZOLE MAGNESIUM
  11. CITALOPRAM [Concomitant]
     Active Substance: CITALOPRAM HYDROBROMIDE
  12. VITAMIN C [Concomitant]
     Active Substance: ASCORBIC ACID

REACTIONS (2)
  - Therapy interrupted [None]
  - Hip fracture [None]
